FAERS Safety Report 7462617-X (Version None)
Quarter: 2011Q2

REPORT INFORMATION
  Report Type: 
  Country: None (occurrence: None)
  Receive Date: 20110506
  Receipt Date: 20110331
  Transmission Date: 20111010
  Serious: Yes (Death, Hospitalization, Other)
  Sender: FDA-Public Use
  Company Number: US-BAYER-201014774NA

PATIENT
  Age: 35 Year
  Sex: Female
  Weight: 56.689 kg

DRUGS (2)
  1. YASMIN [Suspect]
     Indication: PRODUCT USED FOR UNKNOWN INDICATION
     Dosage: UNK UNK, QD
     Route: 048
     Dates: start: 20071201, end: 20080601
  2. TYLENOL SINUS [Concomitant]

REACTIONS (2)
  - DEATH [None]
  - PULMONARY EMBOLISM [None]
